FAERS Safety Report 8433680-4 (Version None)
Quarter: 2012Q2

REPORT INFORMATION
  Report Type: 
  Country: None (occurrence: None)
  Receive Date: 20120323
  Receipt Date: 20110802
  Transmission Date: 20120825
  Serious: Yes (Hospitalization)
  Sender: FDA-Public Use
  Company Number: 163-21880-11071044

PATIENT
  Age: 74 Year
  Sex: Female

DRUGS (2)
  1. REVLIMID [Suspect]
     Indication: MYELODYSPLASTIC SYNDROME
     Dosage: 10 MG, 1 IN 1 D, PO; 5 MG, 3 WEEKS ON, 3 WEEKS OFF, PO
     Route: 048
     Dates: start: 20091101
  2. REVLIMID [Suspect]
     Indication: MYELODYSPLASTIC SYNDROME
     Dosage: 10 MG, 1 IN 1 D, PO; 5 MG, 3 WEEKS ON, 3 WEEKS OFF, PO
     Route: 048
     Dates: start: 20090901

REACTIONS (1)
  - SMALL INTESTINAL OBSTRUCTION [None]
